FAERS Safety Report 6060118-7 (Version None)
Quarter: 2009Q1

REPORT INFORMATION
  Report Type: 
  Country: None (occurrence: None)
  Receive Date: 20090128
  Receipt Date: 20090119
  Transmission Date: 20090719
  Serious: Yes (Hospitalization)
  Sender: FDA-Public Use
  Company Number: 1-17351021

PATIENT
  Age: 75 Year
  Sex: Male

DRUGS (8)
  1. METFORMIN HCL [Suspect]
     Indication: DIABETES MELLITUS
     Dosage: 850 MG TWICE DAILY, ORAL
     Route: 048
  2. FLUDARABINE PHOSPHATE [Suspect]
     Indication: SPLENIC MARGINAL ZONE LYMPHOMA
     Dosage: 25 MG/M^2/DAY X 5 DAY, INTRAVENOUS
     Route: 042
     Dates: start: 20070101, end: 20070101
  3. FLUDARABINE PHOSPHATE [Suspect]
     Indication: SPLENIC MARGINAL ZONE LYMPHOMA
     Dosage: 40 MG/M^2/DAY X 5 DAYS ONCE PER MONTH, ORAL
     Route: 048
     Dates: start: 20070101
  4. CLOPIDOGREL [Concomitant]
  5. MOLSIDOMINE [Concomitant]
  6. ENALAPRIL [Concomitant]
  7. ACEBUTOLOL [Concomitant]
  8. WARFARIN SODIUM [Concomitant]

REACTIONS (2)
  - AUTOIMMUNE NEUTROPENIA [None]
  - DRUG INTERACTION [None]
